FAERS Safety Report 16868010 (Version 3)
Quarter: 2019Q4

REPORT INFORMATION
  Report Type: Spontaneous
  Country: HU (occurrence: HU)
  Receive Date: 20190930
  Receipt Date: 20191216
  Transmission Date: 20200122
  Serious: Yes (Other)
  Sender: FDA-Public Use
  Company Number: HU-UCBSA-2019022905

PATIENT
  Age: 32 Year
  Sex: Female
  Weight: 65 kg

DRUGS (4)
  1. CIMZIA [Suspect]
     Active Substance: CERTOLIZUMAB PEGOL
     Dosage: UNK
     Route: 058
     Dates: start: 2019
  2. HUMIRA [Concomitant]
     Active Substance: ADALIMUMAB
     Dosage: 40 MILLIGRAM, EV 2 WEEKS(QOW)
     Route: 058
     Dates: start: 20160706, end: 20190410
  3. CIMZIA [Suspect]
     Active Substance: CERTOLIZUMAB PEGOL
     Indication: SPONDYLITIS
     Dosage: 400 MILLIGRAM, EV 2 WEEKS(QOW)
     Route: 058
     Dates: start: 20190424
  4. HUMIRA [Concomitant]
     Active Substance: ADALIMUMAB
     Indication: SPONDYLITIS
     Dosage: UNK
     Route: 058
     Dates: start: 20120717, end: 20131127

REACTIONS (3)
  - Caesarean section [Recovered/Resolved]
  - Maternal exposure during pregnancy [Unknown]
  - Maternal exposure during breast feeding [Unknown]

NARRATIVE: CASE EVENT DATE: 20190424
